FAERS Safety Report 6887415-7 (Version None)
Quarter: 2010Q3

REPORT INFORMATION
  Report Type: 
  Country: None (occurrence: None)
  Receive Date: 20100730
  Receipt Date: 20100420
  Transmission Date: 20110219
  Serious: Yes (Hospitalization, Other)
  Sender: FDA-Public Use
  Company Number: A0852994A

PATIENT
  Age: 37 Year
  Sex: Male

DRUGS (3)
  1. IMITREX [Suspect]
     Indication: MIGRAINE
     Dosage: 100MG UNKNOWN
     Route: 048
  2. INDERAL [Concomitant]
  3. FIORICET [Concomitant]

REACTIONS (4)
  - ATRIAL FIBRILLATION [None]
  - CARDIOVERSION [None]
  - PALPITATIONS [None]
  - TACHYCARDIA [None]
